FAERS Safety Report 8549705-1 (Version None)
Quarter: 2012Q3

REPORT INFORMATION
  Report Type: 
  Country: None (occurrence: None)
  Receive Date: 20120720
  Receipt Date: 20120720
  Transmission Date: 20120928
  Serious: No
  Sender: FDA-Public Use
  Company Number: None

PATIENT
  Age: 65 Year
  Sex: Male
  Weight: 138.2 kg

DRUGS (1)
  1. PRAVASTATIN [Suspect]
     Indication: HYPERLIPIDAEMIA
     Dosage: 40 MG EVERY DAY PO
     Route: 048
     Dates: start: 20110914, end: 20120511

REACTIONS (2)
  - BLOOD CREATINE PHOSPHOKINASE INCREASED [None]
  - MYALGIA [None]
